FAERS Safety Report 23262541 (Version 6)
Quarter: 2024Q4

REPORT INFORMATION
  Report Type: Spontaneous
  Country: US (occurrence: US)
  Receive Date: 20231205
  Receipt Date: 20241212
  Transmission Date: 20250115
  Serious: No
  Sender: PFIZER
  Company Number: US-PFIZER INC-PV202300170027

PATIENT
  Age: 84 Year
  Sex: Female
  Weight: 94.059 kg

DRUGS (1)
  1. LORBRENA [Suspect]
     Active Substance: LORLATINIB
     Indication: Non-small cell lung cancer
     Dosage: 50 MG, 1X/DAY (TAKE 2 X 25 MG TABLETS WHOLE WITH WATER WITH OR WITHOUT FOOD SAME TIME EVERY DAY)
     Route: 048
     Dates: start: 20220127

REACTIONS (1)
  - Hypertension [Recovered/Resolved]
